FAERS Safety Report 4669069-3 (Version None)
Quarter: 2005Q2

REPORT INFORMATION
  Report Type: 
  Country: None (occurrence: None)
  Receive Date: 20050519
  Receipt Date: 20050506
  Transmission Date: 20051028
  Serious: Yes (Hospitalization, Other)
  Sender: FDA-Public Use
  Company Number: 203474

PATIENT
  Age: 44 Year
  Sex: Female
  Weight: 59.4212 kg

DRUGS (28)
  1. AVONEX [Suspect]
     Indication: MULTIPLE SCLEROSIS
     Dosage: 30 UG; QW; IM
     Route: 030
     Dates: start: 19980601, end: 20030101
  2. AVONEX [Suspect]
     Indication: MULTIPLE SCLEROSIS
     Dosage: 30 UG; QW; IM
     Route: 030
     Dates: start: 20030101, end: 20040410
  3. AVONEX [Suspect]
     Indication: MULTIPLE SCLEROSIS
     Dosage: 30 UG; QW; IM
     Route: 030
     Dates: start: 20040101
  4. OXYCONTIN [Concomitant]
  5. DIOVAN [Concomitant]
  6. ZYRTEC [Concomitant]
  7. LOTREL [Concomitant]
  8. PROZAC [Concomitant]
  9. SOMA [Concomitant]
  10. ACTOS [Concomitant]
  11. CELEBREX [Concomitant]
  12. GLUCOVANCE [Concomitant]
  13. URISPAS [Concomitant]
  14. PROVIGIL [Concomitant]
  15. SKELAXIN [Concomitant]
  16. REGLAN [Concomitant]
  17. MAXZIDE [Concomitant]
  18. NITROGLYCERIN [Concomitant]
  19. TOPROL-XL [Concomitant]
  20. PLAVIX [Concomitant]
  21. DEMADEX [Concomitant]
  22. NEXIUM [Concomitant]
  23. NEURONTIN [Concomitant]
  24. GLUCOTROL [Concomitant]
  25. XANAX [Concomitant]
  26. ULTRAM [Concomitant]
  27. VICODIN [Concomitant]
  28. INSULIN [Concomitant]

REACTIONS (26)
  - ANAEMIA [None]
  - ANEURYSM [None]
  - BLOOD GLUCOSE INCREASED [None]
  - BLOOD PRESSURE INCREASED [None]
  - BRAIN DAMAGE [None]
  - CEREBROVASCULAR ACCIDENT [None]
  - COMA [None]
  - CORONARY ARTERY DISEASE [None]
  - DEPRESSION [None]
  - DIABETIC NEUROPATHY [None]
  - HAEMORRHAGE [None]
  - HEPATIC FAILURE [None]
  - INFECTION [None]
  - MULTIPLE SCLEROSIS RELAPSE [None]
  - MUSCLE SPASMS [None]
  - MYOCARDIAL INFARCTION [None]
  - MYOCARDIAL ISCHAEMIA [None]
  - OEDEMA PERIPHERAL [None]
  - ORGAN FAILURE [None]
  - PAIN [None]
  - PHARYNGOLARYNGEAL PAIN [None]
  - PNEUMONIA [None]
  - POST PROCEDURAL COMPLICATION [None]
  - RENAL FAILURE [None]
  - SINUSITIS [None]
  - URINARY TRACT INFECTION [None]
